FAERS Safety Report 17229461 (Version 3)
Quarter: 2020Q2

REPORT INFORMATION
  Report Type: Spontaneous
  Country: US (occurrence: US)
  Receive Date: 20200103
  Receipt Date: 20200604
  Transmission Date: 20200713
  Serious: No
  Sender: FDA-Public Use
  Company Number: US-VERTEX PHARMACEUTICALS-2019-013963

PATIENT
  Age: 8 Year
  Sex: Male

DRUGS (1)
  1. KALYDECO [Suspect]
     Active Substance: IVACAFTOR
     Indication: CYSTIC FIBROSIS
     Dosage: 150 MG, BID (REGULAR)
     Route: 048
     Dates: start: 20150910

REACTIONS (1)
  - Pneumonia staphylococcal [Unknown]

NARRATIVE: CASE EVENT DATE: 201910
